FAERS Safety Report 23242707 (Version 1)
Quarter: 2023Q4

REPORT INFORMATION
  Report Type: Spontaneous
  Country: FR (occurrence: FR)
  Receive Date: 20231129
  Receipt Date: 20231129
  Transmission Date: 20240110
  Serious: Yes (Life-Threatening, Hospitalization, Other)
  Sender: FDA-Public Use
  Company Number: FR-MYLANLABS-2023M1125168

PATIENT
  Age: 77 Year
  Sex: Female

DRUGS (1)
  1. ZOLEDRONIC ACID [Suspect]
     Active Substance: ZOLEDRONIC ACID
     Indication: Osteoporosis
     Dosage: UNK
     Route: 065
     Dates: start: 20231109, end: 20231109

REACTIONS (7)
  - Eye infection [Recovering/Resolving]
  - Visual impairment [Unknown]
  - Pruritus [Recovering/Resolving]
  - Tooth loss [Not Recovered/Not Resolved]
  - Myalgia [Recovering/Resolving]
  - Headache [Recovering/Resolving]
  - Eye inflammation [Recovering/Resolving]
